FAERS Safety Report 9219470 (Version 1)
Quarter: 2013Q2

REPORT INFORMATION
  Report Type: Spontaneous
  Country: US (occurrence: None)
  Receive Date: 20130408
  Receipt Date: 20130408
  Transmission Date: 20140414
  Serious: Yes (Other)
  Sender: FDA-Public Use
  Company Number: None

PATIENT
  Sex: Female

DRUGS (2)
  1. EFFEXOR XR [Suspect]
     Dosage: 75 MG FIRST TIME 4-5-13
     Dates: start: 20130405
  2. EFFEXOR XR [Suspect]
     Dosage: 75 MG FIRST TIME 4-5-13
     Dates: start: 20130405

REACTIONS (1)
  - Drug ineffective [None]
